FAERS Safety Report 4526370-1 (Version None)
Quarter: 2004Q4

REPORT INFORMATION
  Report Type: 
  Country: None (occurrence: None)
  Receive Date: 20041214
  Receipt Date: 20041202
  Transmission Date: 20050328
  Serious: Yes (Hospitalization)
  Sender: FDA-Public Use
  Company Number: US-GLAXOSMITHKLINE-A0535995A

PATIENT
  Age: 83 Year
  Sex: Female
  Weight: 88 kg

DRUGS (3)
  1. CITRUCEL SUGAR-FREE SUSPENSION ORANGE [Suspect]
     Indication: GASTROINTESTINAL DISORDER
     Route: 048
     Dates: start: 20040601
  2. VISTARIL [Concomitant]
  3. ULTRAM [Concomitant]

REACTIONS (8)
  - ABDOMINAL DISCOMFORT [None]
  - BLADDER DISCOMFORT [None]
  - BURNING SENSATION [None]
  - CONSTIPATION [None]
  - GASTROINTESTINAL DISORDER [None]
  - ORAL DISCOMFORT [None]
  - SMALL INTESTINAL OBSTRUCTION [None]
  - THROAT IRRITATION [None]
